FAERS Safety Report 6677998-4 (Version None)
Quarter: 2010Q2

REPORT INFORMATION
  Report Type: 
  Country: None (occurrence: None)
  Receive Date: 20100412
  Receipt Date: 20100312
  Transmission Date: 20101027
  Serious: No
  Sender: FDA-Public Use
  Company Number: US-BAYER-201013136BCC

PATIENT
  Age: 39 Year
  Sex: Female
  Weight: 79 kg

DRUGS (1)
  1. ALEVE (CAPLET) [Suspect]
     Indication: NEURALGIA
     Dosage: AS USED: 440/220 MG  UNIT DOSE: 220 MG
     Route: 048
     Dates: start: 20100311

REACTIONS (3)
  - ABDOMINAL DISTENSION [None]
  - EYELID OEDEMA [None]
  - OEDEMA PERIPHERAL [None]
